FAERS Safety Report 12525738 (Version 1)
Quarter: 2016Q3

REPORT INFORMATION
  Report Type: Spontaneous
  Country: US (occurrence: US)
  Receive Date: 20160705
  Receipt Date: 20160705
  Transmission Date: 20161109
  Serious: Yes (Hospitalization, Other)
  Sender: FDA-Public Use
  Company Number: US-ZYDUS-011490

PATIENT
  Age: 70 Year
  Sex: Male

DRUGS (2)
  1. RISPERIDONE. [Suspect]
     Active Substance: RISPERIDONE
     Indication: AGGRESSION
     Route: 065
  2. HALOPERIDOL. [Suspect]
     Active Substance: HALOPERIDOL
     Indication: AGGRESSION
     Route: 065

REACTIONS (11)
  - Cogwheel rigidity [Not Recovered/Not Resolved]
  - Hyporeflexia [Recovering/Resolving]
  - Resting tremor [Recovering/Resolving]
  - Catatonia [Recovering/Resolving]
  - Disturbance in attention [Recovering/Resolving]
  - Drug administration error [Recovered/Resolved]
  - Activities of daily living impaired [Recovering/Resolving]
  - Abasia [Recovering/Resolving]
  - Unresponsive to stimuli [Recovering/Resolving]
  - Hypertonia [Recovering/Resolving]
  - Urinary incontinence [Recovering/Resolving]
